APPROVED DRUG PRODUCT: SUMATRIPTAN SUCCINATE
Active Ingredient: SUMATRIPTAN SUCCINATE
Strength: EQ 4MG BASE/0.5ML (EQ 8MG BASE/ML)
Dosage Form/Route: INJECTABLE;SUBCUTANEOUS
Application: A213518 | Product #001 | TE Code: AB
Applicant: ALEMBIC PHARMACEUTICALS LTD
Approved: Nov 6, 2025 | RLD: No | RS: No | Type: RX